FAERS Safety Report 9303614 (Version 1)
Quarter: 2013Q2

REPORT INFORMATION
  Report Type: Spontaneous
  Country: US (occurrence: US)
  Receive Date: 20130522
  Receipt Date: 20130522
  Transmission Date: 20140414
  Serious: Yes (Other)
  Sender: FDA-Public Use
  Company Number: US-PFIZER INC-2013154623

PATIENT
  Sex: Female

DRUGS (4)
  1. ACCUPRIL [Suspect]
     Dosage: 20 MG, UNK
  2. ALDACTONE [Concomitant]
     Dosage: UNK
  3. XALATAN [Concomitant]
     Dosage: UNK
  4. GLUCOTROL [Concomitant]
     Dosage: UNK

REACTIONS (1)
  - Cardiac disorder [Unknown]
